FAERS Safety Report 10918685 (Version 2)
Quarter: 2015Q2

REPORT INFORMATION
  Report Type: Spontaneous
  Country: US (occurrence: US)
  Receive Date: 20150316
  Receipt Date: 20150617
  Transmission Date: 20150821
  Serious: No
  Sender: FDA-Public Use
  Company Number: US-ASTELLAS-2015US004978

PATIENT
  Age: 67 Year
  Sex: Male

DRUGS (1)
  1. XTANDI [Suspect]
     Active Substance: ENZALUTAMIDE
     Indication: HORMONE-REFRACTORY PROSTATE CANCER
     Route: 065
     Dates: start: 201501

REACTIONS (14)
  - Fatigue [Not Recovered/Not Resolved]
  - Drug dose omission [Unknown]
  - Product size issue [Not Recovered/Not Resolved]
  - Dysuria [Unknown]
  - Flatulence [Unknown]
  - Cystitis [Unknown]
  - Dry skin [Unknown]
  - Memory impairment [Unknown]
  - Urinary tract infection [Unknown]
  - Skin fissures [Unknown]
  - Hot flush [Not Recovered/Not Resolved]
  - Fatigue [Unknown]
  - Nasopharyngitis [Unknown]
  - Erythema [Unknown]

NARRATIVE: CASE EVENT DATE: 20150115
